FAERS Safety Report 21098753 (Version 1)
Quarter: 2022Q3

REPORT INFORMATION
  Report Type: Spontaneous
  Country: NZ (occurrence: NZ)
  Receive Date: 20220719
  Receipt Date: 20220719
  Transmission Date: 20221027
  Serious: Yes (Life-Threatening, Hospitalization)
  Sender: FDA-Public Use
  Company Number: NZ-MYLANLABS-2022M1078484

PATIENT
  Age: 89 Year
  Sex: Female

DRUGS (3)
  1. EPINEPHRINE [Suspect]
     Active Substance: EPINEPHRINE
     Indication: Anaphylactic reaction
     Dosage: 1 MILLIGRAM, RECEIVED 2 DOSES
     Route: 030
  2. ESMOLOL [Suspect]
     Active Substance: ESMOLOL HYDROCHLORIDE
     Indication: Anaphylactic reaction
     Dosage: 20 MILLIGRAM
     Route: 042
  3. HYDROCORTISONE [Concomitant]
     Active Substance: HYDROCORTISONE
     Indication: Anaphylactic reaction
     Dosage: 100 MILLIGRAM
     Route: 065

REACTIONS (7)
  - Kounis syndrome [Unknown]
  - Acute kidney injury [Unknown]
  - Hypoperfusion [Unknown]
  - Bundle branch block left [Unknown]
  - Acute myocardial infarction [Unknown]
  - Cardiac failure [Unknown]
  - Stress cardiomyopathy [Unknown]
